FAERS Safety Report 6081474-X (Version None)
Quarter: 2009Q1

REPORT INFORMATION
  Report Type: 
  Country: None (occurrence: None)
  Receive Date: 20090213
  Receipt Date: 20090128
  Transmission Date: 20090719
  Serious: Yes (Life-Threatening)
  Sender: FDA-Public Use
  Company Number: 000299

PATIENT
  Age: 69 Year
  Sex: Female

DRUGS (5)
  1. ROTIGOTINE (ROTIGOTINE) [Suspect]
     Indication: PARKINSON'S DISEASE
     Dosage: (2 MG QD TRANSDERMAL)
     Route: 062
     Dates: start: 20080601, end: 20080701
  2. BENZHEXOL /00002601/ [Concomitant]
  3. CABERGOLINE [Concomitant]
  4. SELEGILINE [Concomitant]
  5. SINEMET [Concomitant]

REACTIONS (2)
  - LYMPHOMA [None]
  - RASH [None]
